FAERS Safety Report 21899577 (Version 1)
Quarter: 2023Q1

REPORT INFORMATION
  Report Type: Spontaneous
  Country: US (occurrence: None)
  Receive Date: 20230121
  Receipt Date: 20230121
  Transmission Date: 20230417
  Serious: Yes (Life-Threatening, Hospitalization, Disabling, Other)
  Sender: FDA-Public Use
  Company Number: None

PATIENT
  Age: 26 Year
  Weight: 65.25 kg

DRUGS (6)
  1. ISOBUTYL NITRITE [Suspect]
     Active Substance: ISOBUTYL NITRITE
     Indication: Substance use
     Dates: start: 20220801, end: 20221225
  2. TESTOSTERONE [Concomitant]
     Active Substance: TESTOSTERONE
  3. DEPAKOTE [Concomitant]
     Active Substance: DIVALPROEX SODIUM
  4. LEXAPRO [Concomitant]
     Active Substance: ESCITALOPRAM OXALATE
  5. GABAPENTIN [Concomitant]
     Active Substance: GABAPENTIN
  6. VITAMINS [Concomitant]
     Active Substance: VITAMINS

REACTIONS (1)
  - Jaundice [None]

NARRATIVE: CASE EVENT DATE: 20221219
